FAERS Safety Report 13301146 (Version 7)
Quarter: 2024Q4

REPORT INFORMATION
  Report Type: Report from Study
  Country: CA (occurrence: CA)
  Receive Date: 20170307
  Receipt Date: 20241028
  Transmission Date: 20250115
  Serious: Yes (Other)
  Sender: ROCHE
  Company Number: CA-002147023-PHHY2017CA034307

PATIENT
  Age: 52 Year
  Sex: Female
  Weight: 121 kg

DRUGS (6)
  1. XOLAIR [Suspect]
     Active Substance: OMALIZUMAB
     Indication: Asthma
     Route: 058
     Dates: start: 20131021
  2. XOLAIR [Suspect]
     Active Substance: OMALIZUMAB
     Route: 058
     Dates: start: 20170131
  3. XOLAIR [Suspect]
     Active Substance: OMALIZUMAB
     Route: 058
     Dates: start: 20190618
  4. XOLAIR [Suspect]
     Active Substance: OMALIZUMAB
     Route: 058
     Dates: start: 20190710
  5. XOLAIR [Suspect]
     Active Substance: OMALIZUMAB
     Route: 058
     Dates: start: 20220407
  6. XOLAIR [Suspect]
     Active Substance: OMALIZUMAB
     Dosage: 300 MG, BIW
     Route: 058

REACTIONS (16)
  - Cellulitis [Recovered/Resolved]
  - Urinary retention [Recovering/Resolving]
  - Nasopharyngitis [Unknown]
  - Asthma [Unknown]
  - Malaise [Unknown]
  - Weight increased [Unknown]
  - Inappropriate schedule of product administration [Unknown]
  - Incorrect dose administered [Unknown]
  - Off label use [Unknown]
  - Sinusitis [Unknown]
  - Ear pain [Unknown]
  - Dyspnoea [Unknown]
  - Alanine aminotransferase decreased [Unknown]
  - Forced expiratory volume decreased [Unknown]
  - Blood creatinine increased [Unknown]
  - Cough [Unknown]

NARRATIVE: CASE EVENT DATE: 20170219
